FAERS Safety Report 6003552-3 (Version None)
Quarter: 2008Q4

REPORT INFORMATION
  Report Type: 
  Country: None (occurrence: None)
  Receive Date: 20081212
  Receipt Date: 20081212
  Transmission Date: 20090506
  Serious: Yes (Hospitalization)
  Sender: FDA-Public Use
  Company Number: None

PATIENT
  Age: 51 Year
  Sex: Male
  Weight: 71 kg

DRUGS (8)
  1. VANDETANIB (ZACTIMA) [Suspect]
     Indication: GLIOBLASTOMA MULTIFORME
     Dosage: 100 MG QOD X 28 DAYS
     Dates: start: 20080826, end: 20081112
  2. ETOPOSIDE [Suspect]
     Dosage: 100MG QD X 21 DAYS
     Dates: start: 20080826, end: 20081112
  3. LOVENOX [Concomitant]
  4. DECADRON [Concomitant]
  5. LORTAB [Concomitant]
  6. PROTONIX [Concomitant]
  7. SENOKOT [Concomitant]
  8. PHENERGAN HCL [Concomitant]

REACTIONS (9)
  - APHASIA [None]
  - ASTHENIA [None]
  - ATAXIA [None]
  - BACK PAIN [None]
  - COGNITIVE DISORDER [None]
  - DISEASE PROGRESSION [None]
  - FALL [None]
  - MENTAL DISORDER [None]
  - MUSCULAR WEAKNESS [None]
